FAERS Safety Report 6423856-X (Version None)
Quarter: 2009Q4

REPORT INFORMATION
  Report Type: 
  Country: None (occurrence: None)
  Receive Date: 20091102
  Receipt Date: 20091023
  Transmission Date: 20100525
  Serious: Yes (Other)
  Sender: FDA-Public Use
  Company Number: GB-PFIZER INC-2008098622

PATIENT
  Age: 34 Year
  Sex: Female

DRUGS (1)
  1. CHAMPIX [Suspect]
     Dosage: 0.5 MG, 1X/DAY
     Route: 048

REACTIONS (4)
  - HEADACHE [None]
  - MALAISE [None]
  - SOMNOLENCE [None]
  - SUICIDAL IDEATION [None]
